FAERS Safety Report 5523923-9 (Version None)
Quarter: 2007Q4

REPORT INFORMATION
  Report Type: 
  Country: None (occurrence: None)
  Receive Date: 20071121
  Receipt Date: 20071119
  Transmission Date: 20080405
  Serious: Yes (Other)
  Sender: FDA-Public Use
  Company Number: US-SHR-US-2007-032650

PATIENT
  Age: 44 Year
  Sex: Female

DRUGS (3)
  1. BETASERON [Suspect]
     Dosage: 8 MIU, EVERY 2D
     Route: 058
     Dates: start: 20070210
  2. TYLENOL ^JOHNSON + JOHNSON^ [Concomitant]
     Indication: PREMEDICATION
  3. ANTIEMETICS AND ANTINAUSEANTS [Concomitant]
     Indication: NAUSEA

REACTIONS (6)
  - BLINDNESS [None]
  - DEMENTIA [None]
  - HEADACHE [None]
  - INFLUENZA LIKE ILLNESS [None]
  - MULTIPLE SCLEROSIS [None]
  - NAUSEA [None]
